FAERS Safety Report 7445092-0 (Version None)
Quarter: 2011Q2

REPORT INFORMATION
  Report Type: 
  Country: None (occurrence: None)
  Receive Date: 20110429
  Receipt Date: 20110411
  Transmission Date: 20111010
  Serious: Yes (Death, Other)
  Sender: FDA-Public Use
  Company Number: US-BAYER-200915506NA

PATIENT
  Sex: Female
  Weight: 112 kg

DRUGS (22)
  1. VERSED [Concomitant]
     Dosage: UNK
     Route: 042
     Dates: start: 20031006, end: 20031006
  2. PROPOFOL [Concomitant]
     Dosage: 50 MG, UNK
     Route: 042
     Dates: start: 20031006, end: 20031006
  3. INSULIN [Concomitant]
     Route: 058
  4. FLOLAN [Concomitant]
     Dosage: UNK
     Route: 042
     Dates: start: 20031006, end: 20031006
  5. LASIX [Concomitant]
     Route: 048
  6. PANCURONIUM BROMIDE [Concomitant]
     Dosage: UNK
     Route: 042
     Dates: start: 20031006, end: 20031006
  7. SUCCINYLCHOLINE CHLORIDE [Concomitant]
     Dosage: UNK
     Route: 042
     Dates: start: 20031006, end: 20031006
  8. DOBUTAMINE HYDROCHLORIDE [Concomitant]
     Dosage: 3 MCG/KG/MIN, UNK
     Route: 042
     Dates: start: 20031006, end: 20031006
  9. ACETYLSALICYLIC ACID SRT [Concomitant]
     Route: 048
  10. ISOSORBIDE DINITRATE [Concomitant]
     Route: 048
  11. ZAROXOLYN [Concomitant]
     Route: 048
  12. FENTANYL [Concomitant]
     Dosage: UNK
     Route: 042
     Dates: start: 20031006, end: 20031006
  13. EPINEPHRINE [Concomitant]
     Dosage: 0.3 MG/KG/MIN, UNK
     Route: 042
     Dates: start: 20031006, end: 20031006
  14. TRASYLOL [Suspect]
     Indication: TRICUSPID VALVE REPAIR
  15. TRASYLOL [Suspect]
     Indication: INTRACARDIAC THROMBUS
  16. METOPROLOL [Concomitant]
     Route: 048
  17. MILRINONE [Concomitant]
     Dosage: 5 MCG/KG/MIN, UNK
     Route: 042
     Dates: start: 20031006, end: 20031006
  18. HEPARIN [Concomitant]
     Dosage: UNK
     Route: 042
     Dates: start: 20031006, end: 20031006
  19. TRASYLOL [Suspect]
     Indication: ANEURYSMECTOMY
  20. HYDRALAZINE HCL [Concomitant]
     Route: 048
  21. TRASYLOL [Suspect]
     Indication: CORONARY ARTERY BYPASS
     Dosage: UNK
     Dates: start: 20031006
  22. NOREPINEPHRINE BITARTRATE [Concomitant]
     Dosage: 0.04 MG/MIN, UNK
     Route: 042
     Dates: start: 20031006, end: 20031006

REACTIONS (10)
  - INJURY [None]
  - ANXIETY [None]
  - DEPRESSION [None]
  - PAIN [None]
  - FEAR [None]
  - RENAL FAILURE [None]
  - CEREBROVASCULAR ACCIDENT [None]
  - ADVERSE EVENT [None]
  - DEATH [None]
  - ANHEDONIA [None]
